FAERS Safety Report 6878255-3 (Version None)
Quarter: 2010Q3

REPORT INFORMATION
  Report Type: 
  Country: None (occurrence: None)
  Receive Date: 20100728
  Receipt Date: 20100720
  Transmission Date: 20110219
  Serious: Yes (Other)
  Sender: FDA-Public Use
  Company Number: CA-PFIZER INC-2010066765

PATIENT
  Age: 21 Year
  Sex: Male
  Weight: 83.9 kg

DRUGS (2)
  1. ZELDOX [Suspect]
     Indication: SCHIZOAFFECTIVE DISORDER
     Dosage: 160 MG, 2X/DAY
     Dates: start: 20100101
  2. LITHIUM [Concomitant]
     Indication: BIPOLAR DISORDER
     Dosage: 1200 MG, 1X/DAY
     Dates: start: 20081201

REACTIONS (12)
  - APATHY [None]
  - DRUG INEFFECTIVE [None]
  - ELECTROCARDIOGRAM QT INTERVAL ABNORMAL [None]
  - EXCESSIVE EYE BLINKING [None]
  - EXECUTIVE DYSFUNCTION [None]
  - FATIGUE [None]
  - HYPERSOMNIA [None]
  - HYPOAESTHESIA [None]
  - PYREXIA [None]
  - RESTLESSNESS [None]
  - SOMNOLENCE [None]
  - WEIGHT INCREASED [None]
